FAERS Safety Report 8791303 (Version 1)
Quarter: 2012Q4

REPORT INFORMATION
  Report Type: Spontaneous
  Country: US (occurrence: None)
  Receive Date: 20120905
  Receipt Date: 20120905
  Transmission Date: 20130627
  Serious: Yes (Hospitalization)
  Sender: FDA-Public Use
  Company Number: 2012PROUSA01902

PATIENT
  Age: 69 Year
  Sex: Male
  Weight: 78.9 kg

DRUGS (14)
  1. PROVENGE (SIPULEUCEL-T) SUSPENSION [Suspect]
     Indication: PROSTATE CANCER METASTATIC
     Dosage: 250 ml, single, intravenous
     Route: 042
     Dates: start: 20120817, end: 20120817
  2. BAYER ASPIRIN (ACETYLSALICYLIC ACID) [Concomitant]
  3. CARVEDILOL [Concomitant]
  4. DIGOXIN [Concomitant]
  5. IMDUR (ISOSORBIDE MONONITRATE) [Concomitant]
  6. KLOR-CON (POTASSIUM CHLORIDE) [Concomitant]
  7. LISINOPRIL [Concomitant]
  8. NOVOLOG (INSULIN ASPART) [Concomitant]
  9. OMEPRAZOLE [Concomitant]
  10. PRAVASTATIN (PRAVASTATIN SODIUM) [Concomitant]
  11. ZOMETA (ZOLEDRONIC ACID) [Concomitant]
  12. FUROSEMIDE [Concomitant]
  13. LORTAB (HYDROCODONE BITARTRATE, PARACETAMOL) [Concomitant]
  14. ACETAMINOPHEN (PARACETAMOL),ACETYLSAL ACID,CAFFEINE CITRATE [Concomitant]

REACTIONS (1)
  - Acute myocardial infarction [None]
